FAERS Safety Report 7325276-2 (Version None)
Quarter: 2011Q1

REPORT INFORMATION
  Report Type: 
  Country: None (occurrence: None)
  Receive Date: 20110302
  Receipt Date: 20110218
  Transmission Date: 20110831
  Serious: Yes (Hospitalization)
  Sender: FDA-Public Use
  Company Number: CZ-US-EMD SERONO, INC.-7042729

PATIENT
  Age: 29 Year
  Sex: Female

DRUGS (2)
  1. OVITRELLE [Suspect]
     Indication: INFERTILITY
     Dosage: PRODUCT ADMINISTRATED IN FRAME OF IVF
  2. PUREGON PEN [Suspect]
     Indication: INFERTILITY
     Dosage: RECEIVED THROUGH IVF

REACTIONS (4)
  - PREMATURE LABOUR [None]
  - DISCORDANT TWIN [None]
  - PLACENTAL TRANSFUSION SYNDROME [None]
  - STILLBIRTH [None]
